FAERS Safety Report 5611078-1 (Version None)
Quarter: 2008Q1

REPORT INFORMATION
  Report Type: 
  Country: None (occurrence: None)
  Receive Date: 20080129
  Receipt Date: 20080118
  Transmission Date: 20080703
  Serious: Yes (Other)
  Sender: FDA-Public Use
  Company Number: 08H-163-0313734-00

PATIENT
  Age: 31 Year
  Sex: Male

DRUGS (1)
  1. DOBUTAMINE HCL [Suspect]

REACTIONS (3)
  - ACCIDENTAL EXPOSURE [None]
  - CORNEAL ABRASION [None]
  - CORNEAL OEDEMA [None]
